FAERS Safety Report 15245954 (Version 1)
Quarter: 2018Q3

REPORT INFORMATION
  Report Type: Spontaneous
  Country: BR (occurrence: BR)
  Receive Date: 20180806
  Receipt Date: 20180806
  Transmission Date: 20181010
  Serious: Yes (Other)
  Sender: FDA-Public Use
  Company Number: BR-PFIZER INC-2018309160

PATIENT
  Sex: Female

DRUGS (1)
  1. DETRUSITOL [Suspect]
     Active Substance: TOLTERODINE TARTRATE
     Dosage: UNK
     Dates: start: 2018

REACTIONS (4)
  - Urinary tract infection [Unknown]
  - Nocturia [Not Recovered/Not Resolved]
  - Metastatic neoplasm [Not Recovered/Not Resolved]
  - Drug effect increased [Unknown]

NARRATIVE: CASE EVENT DATE: 2018
